FAERS Safety Report 7786879-4 (Version None)
Quarter: 2011Q3

REPORT INFORMATION
  Report Type: 
  Country: None (occurrence: None)
  Receive Date: 20110929
  Receipt Date: 20110926
  Transmission Date: 20111222
  Serious: Yes (Hospitalization)
  Sender: FDA-Public Use
  Company Number: US-PFIZER INC-2011168393

PATIENT
  Sex: Female

DRUGS (3)
  1. DETROL LA [Suspect]
     Dosage: UNK
  2. WARFARIN SODIUM [Suspect]
     Dosage: UNK
  3. CELEBREX [Suspect]
     Dosage: UNK

REACTIONS (3)
  - ATRIAL FIBRILLATION [None]
  - WOUND HAEMORRHAGE [None]
  - BLOOD PRESSURE ABNORMAL [None]
